FAERS Safety Report 7429470-1 (Version None)
Quarter: 2011Q2

REPORT INFORMATION
  Report Type: 
  Country: None (occurrence: None)
  Receive Date: 20110419
  Receipt Date: 20110419
  Transmission Date: 20111010
  Serious: No
  Sender: FDA-Public Use
  Company Number: None

PATIENT

DRUGS (1)
  1. TYLENOL-500 [Suspect]

REACTIONS (4)
  - MUSCLE SPASMS [None]
  - ABDOMINAL PAIN UPPER [None]
  - RASH [None]
  - PRODUCT SIZE ISSUE [None]
